FAERS Safety Report 13807243 (Version 8)
Quarter: 2022Q2

REPORT INFORMATION
  Report Type: Spontaneous
  Country: US (occurrence: US)
  Receive Date: 20170728
  Receipt Date: 20220519
  Transmission Date: 20220720
  Serious: No
  Sender: FDA-Public Use
  Company Number: US-PFIZER INC-2017327406

PATIENT
  Age: 8 Year
  Sex: Female
  Weight: 44.9 kg

DRUGS (15)
  1. SOMATROPIN [Suspect]
     Active Substance: SOMATROPIN
     Indication: Growth hormone deficiency
     Dosage: 1.8 MG, DAILY
     Dates: start: 201706
  2. SOMATROPIN [Suspect]
     Active Substance: SOMATROPIN
     Indication: Hypopituitarism
     Dosage: 1.6 MG, DAILY (INTO THE SKIN)
     Dates: start: 201706
  3. SOMATROPIN [Suspect]
     Active Substance: SOMATROPIN
     Dosage: 1.8 MG, DAILY
  4. SOMATROPIN [Suspect]
     Active Substance: SOMATROPIN
     Dosage: 1.6 MG, DAILY (INTO THE SKIN)
     Route: 058
     Dates: start: 20170808
  5. SOMATROPIN [Suspect]
     Active Substance: SOMATROPIN
     Dosage: 1.2 MG, DAILY
     Dates: start: 20170607
  6. SOMATROPIN [Suspect]
     Active Substance: SOMATROPIN
     Dosage: 1.4 MG, DAILY
  7. SOMATROPIN [Suspect]
     Active Substance: SOMATROPIN
     Dosage: 1.2 MG
     Dates: start: 2017
  8. CORTEF [Concomitant]
     Active Substance: HYDROCORTISONE
     Indication: Hypopituitarism
     Dosage: 5 MG, 2X/DAY
     Route: 048
  9. SYNTHROID [Concomitant]
     Active Substance: LEVOTHYROXINE SODIUM
     Indication: Growth hormone deficiency
     Dosage: 50 UG, DAILY (TAKE IN THE MORNING ON AN EMPTY STOMACH)
     Route: 048
  10. SYNTHROID [Concomitant]
     Active Substance: LEVOTHYROXINE SODIUM
     Dosage: UNK UNK, 1X/DAY (0.5 TABS/EVERY MORNING (BEFORE BREAKFAST). TAKE IN THE MORNING ON AN EMPTY STOMACH)
     Route: 048
     Dates: start: 20170808
  11. SYNTHROID [Concomitant]
     Active Substance: LEVOTHYROXINE SODIUM
     Dosage: 62.5 UG, DAILY (INCREASE TO 1/2 TABLET)
  12. LEVOTHROID [Concomitant]
     Active Substance: LEVOTHYROXINE SODIUM
     Indication: Growth hormone deficiency
     Dosage: 50 UG, DAILY (TAKE IN THE MORNING ON AN EMPTY STOMACH)
     Route: 048
  13. LEVOTHROID [Concomitant]
     Active Substance: LEVOTHYROXINE SODIUM
     Dosage: UNK UNK, 1X/DAY (0.5 TABS/EVERY MORNING (BEFORE BREAKFAST). TAKE IN THE MORNING ON AN EMPTY STOMACH)
     Route: 048
  14. LEVOTHROID [Concomitant]
     Active Substance: LEVOTHYROXINE SODIUM
     Dosage: 125 UG, DAILY (INCREASE TO 1/2 TABLET)
  15. SOLU-CORTEF [Concomitant]
     Active Substance: HYDROCORTISONE SODIUM SUCCINATE
     Indication: Hypopituitarism
     Dosage: 100 MG, UNK (ONCE FOR 1 DOSE)
     Route: 030
     Dates: start: 20170808, end: 20170808

REACTIONS (2)
  - Blood cholesterol increased [Not Recovered/Not Resolved]
  - Thyroxine free decreased [Unknown]
